FAERS Safety Report 24705595 (Version 1)
Quarter: 2024Q4

REPORT INFORMATION
  Report Type: Spontaneous
  Country: US (occurrence: None)
  Receive Date: 20241205
  Receipt Date: 20241205
  Transmission Date: 20250115
  Serious: No
  Sender: Public
  Company Number: None

PATIENT
  Age: 10 Year
  Sex: Female
  Weight: 49.7 kg

DRUGS (1)
  1. DUPIXENT [Suspect]
     Active Substance: DUPILUMAB
     Indication: Asthma
     Dosage: OTHER FREQUENCY : EVERY 2WEEKS;?
     Route: 058
     Dates: end: 20241205

REACTIONS (1)
  - Vitiligo [None]

NARRATIVE: CASE EVENT DATE: 20241007
